FAERS Safety Report 9618463 (Version 2)
Quarter: 2013Q4

REPORT INFORMATION
  Report Type: Spontaneous
  Country: US (occurrence: US)
  Receive Date: 20131014
  Receipt Date: 20131111
  Transmission Date: 20140711
  Serious: No
  Sender: FDA-Public Use
  Company Number: US-PFIZER INC-2013291312

PATIENT
  Age: 80 Year
  Sex: Female
  Weight: 86.17 kg

DRUGS (13)
  1. REVATIO [Suspect]
     Indication: PULMONARY HYPERTENSION
     Dosage: 20 MG, 3X/DAY
     Route: 048
     Dates: start: 20121120
  2. REVATIO [Suspect]
     Indication: PULMONARY ARTERIAL HYPERTENSION
     Dosage: 20 MG, 3X/DAY
     Route: 048
     Dates: start: 2012, end: 2012
  3. REVATIO [Suspect]
     Dosage: 20 MG, 2X/DAY
     Route: 048
     Dates: start: 2012, end: 2012
  4. REVATIO [Suspect]
     Dosage: 20 MG, 3X/DAY
     Route: 048
     Dates: start: 2012, end: 2013
  5. REVATIO [Suspect]
     Dosage: 20 MG, 2X/DAY
     Route: 048
     Dates: start: 2013
  6. AZOR [Concomitant]
     Indication: HYPERTENSION
     Dosage: 5/40 MG, 1X/DAY
  7. FUROSEMIDE [Concomitant]
     Dosage: 20 MG, 1X/DAY
  8. DIGOXIN [Concomitant]
     Dosage: 1.25 MG, 1X/DAY
  9. CLOPIDOGREL [Concomitant]
     Dosage: 75 MG, ALTERNATE DAY
  10. WARFARIN [Concomitant]
     Dosage: 2.5 MG, 1X/DAY
  11. METOPROLOL [Concomitant]
     Dosage: 50 MG, 2X/DAY
  12. ATORVASTATIN [Concomitant]
     Dosage: 20 MG, 1X/DAY
  13. TYLENOL [Concomitant]
     Indication: HEADACHE
     Dosage: UNK

REACTIONS (3)
  - Dyspnoea [Recovered/Resolved]
  - Dizziness [Recovered/Resolved]
  - Body height decreased [Unknown]
